FAERS Safety Report 24371084 (Version 1)
Quarter: 2024Q3

REPORT INFORMATION
  Report Type: Spontaneous
  Country: IT (occurrence: IT)
  Receive Date: 20240927
  Receipt Date: 20240927
  Transmission Date: 20241016
  Serious: Yes (Other)
  Sender: CELLTRION
  Company Number: None

PATIENT

DRUGS (3)
  1. HERZUMA [Suspect]
     Active Substance: TRASTUZUMAB-PKRB
     Indication: Vulval cancer
     Dosage: 300MG G1Q21
     Route: 042
  2. PACLITAXEL [Suspect]
     Active Substance: PACLITAXEL
     Indication: Vulval cancer
     Dosage: 110 MG
     Route: 042
     Dates: start: 20231109, end: 20240216
  3. LEVOTHYROXINE [Concomitant]
     Active Substance: LEVOTHYROXINE\LEVOTHYROXINE SODIUM
     Indication: Hypothyroidism
     Dosage: 50 MICROGRAM, EVERY 24 HOUR
     Route: 048

REACTIONS (6)
  - Hyperpyrexia [Recovered/Resolved]
  - Neutropenia [Recovering/Resolving]
  - Eyelid oedema [Recovered/Resolved]
  - Type IV hypersensitivity reaction [Recovered/Resolved]
  - Off label use [Unknown]
  - Off label use [Unknown]

NARRATIVE: CASE EVENT DATE: 20231109
